FAERS Safety Report 4609495-1 (Version None)
Quarter: 2005Q1

REPORT INFORMATION
  Report Type: 
  Country: None (occurrence: None)
  Receive Date: 20050314
  Receipt Date: 20050314
  Transmission Date: 20050727
  Serious: Yes (Hospitalization)
  Sender: FDA-Public Use
  Company Number: None

PATIENT
  Age: 72 Year
  Sex: Female

DRUGS (1)
  1. TOPOTECAN [Suspect]
     Indication: NEOPLASM MALIGNANT
     Dosage: 2.8MG 2 D
     Dates: start: 20041119, end: 20041123

REACTIONS (1)
  - NEUTROPENIA [None]
